FAERS Safety Report 16412946 (Version 1)
Quarter: 2019Q2

REPORT INFORMATION
  Report Type: Spontaneous
  Country: NL (occurrence: NL)
  Receive Date: 20190611
  Receipt Date: 20190611
  Transmission Date: 20190711
  Serious: Yes (Other)
  Sender: FDA-Public Use
  Company Number: NL-AUROBINDO-AUR-APL-2019-032175

PATIENT

DRUGS (1)
  1. MINOCYCLINE 100 MG,FILM-COATED TABLET [Suspect]
     Active Substance: MINOCYCLINE HYDROCHLORIDE
     Indication: ROSACEA
     Dosage: 100 MILLIGRAM, ONCE A DAY (1 X DAAGS 1 TABLET)
     Route: 048
     Dates: start: 20190328, end: 20190402

REACTIONS (1)
  - Pneumonia [Recovered/Resolved]
